FAERS Safety Report 6160438-1 (Version None)
Quarter: 2009Q2

REPORT INFORMATION
  Report Type: 
  Country: None (occurrence: None)
  Receive Date: 20090416
  Receipt Date: 20090407
  Transmission Date: 20091009
  Serious: No
  Sender: FDA-Public Use
  Company Number: 2009003215

PATIENT

DRUGS (2)
  1. FENTORA [Suspect]
     Indication: PAIN
     Dosage: 9600 MCG (600 MCG, 2 IN 3 HR), BU
     Route: 002
  2. DURAGESIC PATCH (PARACETAMOL, ORPHENADRINE CITRATE) [Concomitant]

REACTIONS (1)
  - DRUG PRESCRIBING ERROR [None]
